FAERS Safety Report 4837529-8 (Version None)
Quarter: 2005Q4

REPORT INFORMATION
  Report Type: 
  Country: None (occurrence: None)
  Receive Date: 20051123
  Receipt Date: 20051123
  Transmission Date: 20060501
  Serious: Yes (Other)
  Sender: FDA-Public Use
  Company Number: None

PATIENT
  Age: 41 Year
  Sex: Male
  Weight: 97.1 kg

DRUGS (11)
  1. CEFEPIME [Suspect]
     Indication: INFECTION
     Dosage: 2GM, 1GM Q12H, IV PIGGY
     Route: 042
  2. ACETAMINOPHEN [Concomitant]
  3. CAMPHOR / MENTHOL [Concomitant]
  4. CITALOPRAM [Concomitant]
  5. DOCUSATE SOD [Concomitant]
  6. IBUPROFEN [Concomitant]
  7. ALPRAZOLAM [Concomitant]
  8. SIMVASTATIN [Concomitant]
  9. VALACYCLOVIR HCL [Concomitant]
  10. ACETAMINOPHEN AND HYDROCODONE BITARTRATE [Concomitant]
  11. ONDANSETRON [Concomitant]

REACTIONS (1)
  - RASH [None]
